FAERS Safety Report 8549716-6 (Version None)
Quarter: 2012Q3

REPORT INFORMATION
  Report Type: 
  Country: None (occurrence: None)
  Receive Date: 20120730
  Receipt Date: 20120719
  Transmission Date: 20120928
  Serious: Yes (Other)
  Sender: FDA-Public Use
  Company Number: CH-ASTRAZENECA-2012SE50930

PATIENT
  Age: 43 Year
  Sex: Female
  Weight: 63 kg

DRUGS (12)
  1. PAROXETINE HCL [Concomitant]
     Indication: TENSION
     Route: 048
     Dates: start: 20090401, end: 20120301
  2. SEROQUEL [Suspect]
     Route: 048
     Dates: start: 20120601
  3. ESCITALOPRAM [Concomitant]
     Indication: DEPRESSION
     Route: 048
     Dates: start: 20070401, end: 20110601
  4. ESCITALOPRAM [Concomitant]
     Indication: TENSION
     Route: 048
     Dates: start: 20070401, end: 20110601
  5. SEROQUEL [Suspect]
     Indication: TENSION
     Route: 048
     Dates: start: 20080101, end: 20120601
  6. SEROQUEL [Suspect]
     Route: 048
     Dates: start: 20120601
  7. PAROXETINE HCL [Concomitant]
     Indication: SUICIDAL IDEATION
     Route: 048
     Dates: start: 20090401, end: 20120301
  8. SEROQUEL [Suspect]
     Route: 048
     Dates: start: 20120601
  9. ESCITALOPRAM [Concomitant]
     Indication: SUICIDAL IDEATION
     Route: 048
     Dates: start: 20070401, end: 20110601
  10. PAROXETINE HCL [Concomitant]
     Indication: DEPRESSION
     Route: 048
     Dates: start: 20090401, end: 20120301
  11. SEROQUEL [Suspect]
     Indication: SUICIDAL IDEATION
     Route: 048
     Dates: start: 20080101, end: 20120601
  12. SEROQUEL [Suspect]
     Indication: DEPRESSION
     Route: 048
     Dates: start: 20080101, end: 20120601

REACTIONS (4)
  - HISTAMINE INTOLERANCE [None]
  - ARTHRALGIA [None]
  - RASH [None]
  - ABDOMINAL PAIN [None]
